FAERS Safety Report 25636046 (Version 3)
Quarter: 2025Q3

REPORT INFORMATION
  Report Type: Spontaneous
  Country: US (occurrence: US)
  Receive Date: 20250803
  Receipt Date: 20250929
  Transmission Date: 20251020
  Serious: No
  Sender: SANOFI AVENTIS
  Company Number: US-SA-2025SA223633

PATIENT
  Age: 72 Year
  Sex: Male

DRUGS (4)
  1. DUPIXENT [Suspect]
     Active Substance: DUPILUMAB
     Indication: Dermatitis atopic
     Dosage: 300 MG, QOW
     Route: 058
     Dates: start: 202506
  2. LISINOPRIL [Suspect]
     Active Substance: LISINOPRIL
  3. LYNPARZA [Suspect]
     Active Substance: OLAPARIB
  4. XTANDI [Concomitant]
     Active Substance: ENZALUTAMIDE

REACTIONS (7)
  - Abdominal discomfort [Unknown]
  - Dyspepsia [Unknown]
  - Gastrooesophageal reflux disease [Unknown]
  - Arthralgia [Unknown]
  - Rash [Unknown]
  - Drug hypersensitivity [Unknown]
  - Dermatitis atopic [Unknown]

NARRATIVE: CASE EVENT DATE: 20250101
